FAERS Safety Report 14392808 (Version 2)
Quarter: 2018Q1

REPORT INFORMATION
  Report Type: Spontaneous
  Country: US (occurrence: US)
  Receive Date: 20180116
  Receipt Date: 20180122
  Transmission Date: 20180509
  Serious: Yes (Death)
  Sender: FDA-Public Use
  Company Number: US-CELGENEUS-USA-20180103991

PATIENT
  Age: 89 Year
  Sex: Male

DRUGS (3)
  1. OTEZLA [Suspect]
     Active Substance: APREMILAST
     Indication: IRITIS
     Dosage: 60 MILLIGRAM
     Route: 048
     Dates: start: 20171030, end: 20171207
  2. OTEZLA [Suspect]
     Active Substance: APREMILAST
     Indication: ULCERATIVE KERATITIS
  3. OTEZLA [Suspect]
     Active Substance: APREMILAST
     Indication: PSORIATIC ARTHROPATHY

REACTIONS (1)
  - Death [Fatal]

NARRATIVE: CASE EVENT DATE: 20180106
